FAERS Safety Report 18943865 (Version 3)
Quarter: 2023Q4

REPORT INFORMATION
  Report Type: Spontaneous
  Country: CA (occurrence: None)
  Receive Date: 20210226
  Receipt Date: 20231120
  Transmission Date: 20240110
  Serious: Yes (Hospitalization)
  Sender: FDA-Public Use
  Company Number: CA-ROCHE-2774013

PATIENT
  Age: 4 Year
  Sex: Male

DRUGS (15)
  1. SOMATROPIN [Suspect]
     Active Substance: SOMATROPIN
     Indication: Growth hormone deficiency
     Route: 065
  2. SOMATROPIN [Suspect]
     Active Substance: SOMATROPIN
     Route: 065
  3. SOMATROPIN [Suspect]
     Active Substance: SOMATROPIN
     Indication: Growth hormone deficiency
     Route: 058
  4. SOMATROPIN [Suspect]
     Active Substance: SOMATROPIN
     Route: 058
  5. SOMATROPIN [Suspect]
     Active Substance: SOMATROPIN
     Route: 058
  6. SOMATROPIN [Suspect]
     Active Substance: SOMATROPIN
     Route: 058
  7. SOMATROPIN [Suspect]
     Active Substance: SOMATROPIN
     Route: 058
  8. SOMATROPIN [Suspect]
     Active Substance: SOMATROPIN
     Route: 058
  9. SOMATROPIN [Suspect]
     Active Substance: SOMATROPIN
     Route: 058
  10. DDAVP [Concomitant]
     Active Substance: DESMOPRESSIN ACETATE
  11. KEPPRA [Concomitant]
     Active Substance: LEVETIRACETAM
  12. MELATONIN [Concomitant]
     Active Substance: MELATONIN
  13. PREDNISONE [Concomitant]
     Active Substance: PREDNISONE
  14. SYNTHROID [Concomitant]
     Active Substance: LEVOTHYROXINE SODIUM
  15. TOPAMAX [Concomitant]
     Active Substance: TOPIRAMATE

REACTIONS (3)
  - Hypoglycaemic seizure [Unknown]
  - Hypopituitarism [Unknown]
  - Gastroenteritis viral [Unknown]
